FAERS Safety Report 10178323 (Version 2)
Quarter: 2014Q2

REPORT INFORMATION
  Report Type: Spontaneous
  Country: ES (occurrence: ES)
  Receive Date: 20140519
  Receipt Date: 20140527
  Transmission Date: 20141212
  Serious: Yes (Life-Threatening, Hospitalization)
  Sender: FDA-Public Use
  Company Number: ES-UCBSA-120994

PATIENT
  Age: 58 Year
  Sex: Male
  Weight: 76 kg

DRUGS (1)
  1. KEPPRA [Suspect]
     Indication: EPILEPSY
     Dosage: 500 MG INTRAVENOUSLY DURING 45 MINUTES (INTAKE WAS ONCE ONLY)
     Route: 042
     Dates: start: 20140504, end: 20140504

REACTIONS (1)
  - Atrioventricular block [Recovered/Resolved]
